FAERS Safety Report 19328064 (Version 1)
Quarter: 2021Q2

REPORT INFORMATION
  Report Type: Spontaneous
  Country: AT (occurrence: AT)
  Receive Date: 20210528
  Receipt Date: 20210528
  Transmission Date: 20210717
  Serious: Yes (Life-Threatening, Hospitalization, Other)
  Sender: FDA-Public Use
  Company Number: AT-MICRO LABS LIMITED-ML2021-01638

PATIENT
  Age: 8 Day
  Sex: Female

DRUGS (1)
  1. CAFFEINE CITRATE. [Suspect]
     Active Substance: CAFFEINE CITRATE
     Indication: SLEEP APNOEA SYNDROME

REACTIONS (1)
  - Drug ineffective [Unknown]
